FAERS Safety Report 15319788 (Version 1)
Quarter: 2018Q3

REPORT INFORMATION
  Report Type: Spontaneous
  Country: US (occurrence: US)
  Receive Date: 20180827
  Receipt Date: 20180827
  Transmission Date: 20181010
  Serious: No
  Sender: FDA-Public Use
  Company Number: US-009507513-1612USA000502

PATIENT
  Age: 24 Year
  Sex: Female

DRUGS (4)
  1. ABACAVIR. [Suspect]
     Active Substance: ABACAVIR
     Dosage: 900 (UNIT NOT REPORTED), QD
     Route: 048
     Dates: start: 20150615, end: 20151130
  2. DARUNAVIR [Suspect]
     Active Substance: DARUNAVIR
     Dosage: 1200 (UNIT NOT REPORTED), QD
     Route: 048
     Dates: start: 20150608, end: 20151130
  3. ISENTRESS [Suspect]
     Active Substance: RALTEGRAVIR POTASSIUM
     Dosage: 800 (UNIT NOT REPORTED), QD
     Route: 048
     Dates: start: 20150615, end: 20151130
  4. RITONAVIR. [Suspect]
     Active Substance: RITONAVIR
     Dosage: 200 (UNIT NOT REPORTED), QD
     Route: 048
     Dates: start: 20150615, end: 20151130

REACTIONS (1)
  - Maternal exposure during pregnancy [Recovered/Resolved]
